FAERS Safety Report 23486341 (Version 1)
Quarter: 2024Q1

REPORT INFORMATION
  Report Type: Spontaneous
  Country: None (occurrence: CN)
  Receive Date: 20240206
  Receipt Date: 20240206
  Transmission Date: 20240410
  Serious: Yes (Other)
  Sender: FDA-Public Use
  Company Number: CN-Jiangsu Hengrui Medicine Co., Ltd.-2152699

PATIENT
  Age: 7 Year
  Sex: Female
  Weight: 28.8 kg

DRUGS (2)
  1. CISATRACURIUM BESYLATE [Suspect]
     Active Substance: CISATRACURIUM BESYLATE
     Indication: Muscle relaxant therapy
     Route: 041
     Dates: start: 20240126, end: 20240126
  2. PROPOFOL [Suspect]
     Active Substance: PROPOFOL
     Route: 041
     Dates: start: 20240126, end: 20240126

REACTIONS (2)
  - Airway peak pressure increased [Recovering/Resolving]
  - Wheezing [Recovering/Resolving]

NARRATIVE: CASE EVENT DATE: 20240126
